FAERS Safety Report 8093467-1 (Version None)
Quarter: 2012Q1

REPORT INFORMATION
  Report Type: 
  Country: None (occurrence: None)
  Receive Date: 20120129
  Receipt Date: 20110902
  Transmission Date: 20120608
  Serious: No
  Sender: FDA-Public Use
  Company Number: US-ABBOTT-11P-163-0851285-00

PATIENT
  Age: 49 Year
  Sex: Female

DRUGS (3)
  1. HUMIRA [Suspect]
     Indication: RHEUMATOID ARTHRITIS
     Dates: start: 20110831
  2. LORTAB [Concomitant]
     Indication: PAIN
     Dosage: 5/500MG EVERY 6 HOURS AS NEEDED
  3. MELOXICAM [Concomitant]
     Indication: PRODUCT USED FOR UNKNOWN INDICATION

REACTIONS (5)
  - SNEEZING [None]
  - NASAL CONGESTION [None]
  - ABDOMINAL PAIN UPPER [None]
  - BACK PAIN [None]
  - OROPHARYNGEAL PAIN [None]
